FAERS Safety Report 15980080 (Version 1)
Quarter: 2019Q1

REPORT INFORMATION
  Report Type: Spontaneous
  Country: US (occurrence: US)
  Receive Date: 20190218
  Receipt Date: 20190218
  Transmission Date: 20190418
  Serious: Yes (Hospitalization)
  Sender: FDA-Public Use
  Company Number: None

PATIENT
  Sex: Female

DRUGS (2)
  1. NO MED LIST AVAILABLE [Concomitant]
  2. REPATHA [Suspect]
     Active Substance: EVOLOCUMAB
     Indication: TYPE IIA HYPERLIPIDAEMIA

REACTIONS (4)
  - Myocardial infarction [None]
  - Renal failure [None]
  - Cardiac failure [None]
  - Influenza [None]
